FAERS Safety Report 14133554 (Version 1)
Quarter: 2017Q4

REPORT INFORMATION
  Report Type: Spontaneous
  Country: US (occurrence: None)
  Receive Date: 20171026
  Receipt Date: 20171026
  Transmission Date: 20180321
  Serious: Yes (Life-Threatening, Hospitalization)
  Sender: FDA-Public Use
  Company Number: None

PATIENT
  Age: 67 Year
  Sex: Male
  Weight: 91 kg

DRUGS (2)
  1. PEMBROLIZUMAB. [Suspect]
     Active Substance: PEMBROLIZUMAB
     Indication: LUNG NEOPLASM MALIGNANT
     Dosage: OTHER
     Route: 042
     Dates: start: 20170308
  2. INFLUENZA [Suspect]
     Active Substance: INFLUENZA VIRUS VACCINE
     Indication: INFECTION PROPHYLAXIS
     Route: 030
     Dates: start: 20171004

REACTIONS (8)
  - Stress cardiomyopathy [None]
  - Myocarditis [None]
  - Weight decreased [None]
  - Headache [None]
  - Cardiac failure congestive [None]
  - Cerebral infarction [None]
  - Confusional state [None]
  - Dyspnoea [None]

NARRATIVE: CASE EVENT DATE: 20171023
